FAERS Safety Report 22394579 (Version 2)
Quarter: 2023Q2

REPORT INFORMATION
  Report Type: Spontaneous
  Country: CO (occurrence: CO)
  Receive Date: 20230601
  Receipt Date: 20230608
  Transmission Date: 20230722
  Serious: Yes (Life-Threatening, Hospitalization, Other)
  Sender: FDA-Public Use
  Company Number: CO-FreseniusKabi-FK202307457

PATIENT
  Age: 73 Year
  Sex: Female
  Weight: 44 kg

DRUGS (4)
  1. PROPOFOL [Suspect]
     Active Substance: PROPOFOL
     Indication: Sedation
     Dosage: 50MCG/KG/MIN DURING 50 MINUTES
     Route: 042
     Dates: start: 20230517, end: 20230517
  2. PROPOFOL [Suspect]
     Active Substance: PROPOFOL
     Indication: General anaesthesia
  3. REMIFENTANIL [Concomitant]
     Active Substance: REMIFENTANIL
     Indication: Sedation
  4. MIDAZOLAM [Concomitant]
     Active Substance: MIDAZOLAM
     Indication: Sedation

REACTIONS (7)
  - Bacteraemia [Not Recovered/Not Resolved]
  - Septic shock [Not Recovered/Not Resolved]
  - Abdominal pain [Unknown]
  - Distributive shock [Unknown]
  - Diarrhoea [Unknown]
  - Hypotension [Not Recovered/Not Resolved]
  - Myalgia [Unknown]

NARRATIVE: CASE EVENT DATE: 20230517
